FAERS Safety Report 6665918-8 (Version None)
Quarter: 2010Q2

REPORT INFORMATION
  Report Type: 
  Country: None (occurrence: None)
  Receive Date: 20100402
  Receipt Date: 20100322
  Transmission Date: 20101027
  Serious: Yes (Death)
  Sender: FDA-Public Use
  Company Number: US-ROCHE-694619

PATIENT
  Sex: Male
  Weight: 64 kg

DRUGS (1)
  1. CAPECITABINE [Suspect]
     Dosage: 3 TABLETS OF 500 MG IN MORNING AND 3 TABLETS OF 500 MG IN EVENING, 2 WEEKS ON AND 1 WEEK OFF
     Route: 048
     Dates: start: 20100121

REACTIONS (2)
  - DEATH [None]
  - JAUNDICE [None]
